FAERS Safety Report 4369589-5 (Version None)
Quarter: 2004Q2

REPORT INFORMATION
  Report Type: 
  Country: None (occurrence: None)
  Receive Date: 20040526
  Receipt Date: 20040220
  Transmission Date: 20050107
  Serious: Yes (Life-Threatening, Hospitalization, Other)
  Sender: FDA-Public Use
  Company Number: USA040260013

PATIENT
  Age: 55 Year
  Sex: Female

DRUGS (4)
  1. ZYPREXA [Suspect]
     Indication: MANIA
     Dosage: 7.5 MG DAY
     Dates: start: 20031101
  2. ZYPREXA [Suspect]
     Indication: SCHIZOAFFECTIVE DISORDER
     Dosage: 7.5 MG DAY
     Dates: start: 20031101
  3. CELEXA [Concomitant]
  4. FLUOXETINE [Concomitant]

REACTIONS (7)
  - DEPRESSION [None]
  - FLAT AFFECT [None]
  - LETHARGY [None]
  - RESTLESSNESS [None]
  - SOMNOLENCE [None]
  - SUICIDE ATTEMPT [None]
  - THINKING ABNORMAL [None]
